FAERS Safety Report 9352356 (Version 1)
Quarter: 2013Q2

REPORT INFORMATION
  Report Type: Spontaneous
  Country: US (occurrence: US)
  Receive Date: 20130617
  Receipt Date: 20130617
  Transmission Date: 20140414
  Serious: Yes (Other)
  Sender: FDA-Public Use
  Company Number: US-NICOBRDEVP-2013-10422

PATIENT
  Age: 68 Year
  Sex: Female

DRUGS (2)
  1. ALENDRONATE SODIUM (WATSON LABORATORIES) [Suspect]
     Indication: OSTEOPOROSIS
     Dosage: ^AS PRESCRIBED AND IN FORESEEABLE MANNER^
     Route: 048
     Dates: start: 200808, end: 201204
  2. FOSAMAX [Suspect]
     Indication: OSTEOPOROSIS
     Dosage: ^AS PRESCRIBED AND IN FORESEEABLE MANNER^
     Route: 048
     Dates: start: 200409, end: 200807

REACTIONS (3)
  - Lower limb fracture [Unknown]
  - Femur fracture [Unknown]
  - Incorrect drug administration duration [Unknown]
